FAERS Safety Report 9248872 (Version 2)
Quarter: 2014Q4

REPORT INFORMATION
  Report Type: Spontaneous
  Country: US (occurrence: US)
  Receive Date: 20130423
  Receipt Date: 20141205
  Transmission Date: 20150529
  Serious: Yes (Other)
  Sender: FDA-Public Use
  Company Number: US-ROCHE-778847

PATIENT
  Age: 47 Year
  Sex: Male
  Weight: 70.82 kg

DRUGS (4)
  1. ACCUTANE [Suspect]
     Active Substance: ISOTRETINOIN
     Route: 048
  2. METFORMIN [Concomitant]
     Active Substance: METFORMIN HYDROCHLORIDE
     Route: 065
  3. ACCUTANE [Suspect]
     Active Substance: ISOTRETINOIN
     Indication: ACNE
     Route: 048
     Dates: start: 199811, end: 199904
  4. AVANDIA [Concomitant]
     Active Substance: ROSIGLITAZONE MALEATE

REACTIONS (8)
  - Lip dry [Unknown]
  - Inflammatory bowel disease [Unknown]
  - Stress [Unknown]
  - Dry skin [Unknown]
  - Large intestine polyp [Unknown]
  - Colitis ulcerative [Not Recovered/Not Resolved]
  - Intestinal haemorrhage [Unknown]
  - Perirectal abscess [Unknown]

NARRATIVE: CASE EVENT DATE: 19990107
